FAERS Safety Report 7951947-0 (Version None)
Quarter: 2011Q4

REPORT INFORMATION
  Report Type: 
  Country: None (occurrence: None)
  Receive Date: 20111201
  Receipt Date: 20111125
  Transmission Date: 20120403
  Serious: Yes (Other)
  Sender: FDA-Public Use
  Company Number: JP-PFIZER INC-2010095929

PATIENT
  Sex: Female

DRUGS (3)
  1. LYRICA [Suspect]
     Dosage: 75 MG, 3X/DAY
     Route: 048
     Dates: start: 20100722
  2. MORPHINE HYDROCHLORIDE [Suspect]
     Dosage: UNK
     Dates: start: 20090301
  3. GABAPENTIN [Suspect]

REACTIONS (7)
  - DIZZINESS [None]
  - DRUG INTERACTION [None]
  - PRURITUS [None]
  - NAUSEA [None]
  - DRUG INEFFECTIVE [None]
  - CONSTIPATION [None]
  - HERPES ZOSTER [None]
